FAERS Safety Report 25336259 (Version 2)
Quarter: 2025Q2

REPORT INFORMATION
  Report Type: Spontaneous
  Country: CA (occurrence: CA)
  Receive Date: 20250520
  Receipt Date: 20250613
  Transmission Date: 20250716
  Serious: Yes (Other)
  Sender: PFIZER
  Company Number: CA-PFIZER INC-202500103712

PATIENT
  Age: 82 Year
  Sex: Male

DRUGS (13)
  1. VYNDAMAX [Suspect]
     Active Substance: TAFAMIDIS
     Indication: Cardiac amyloidosis
     Dosage: 61 MG, 1X/DAY
     Route: 048
     Dates: start: 20231220
  2. AMLODIPINE [Concomitant]
     Active Substance: AMLODIPINE BESYLATE
     Dosage: 5 MG, DAILY
  3. ATORVASTATIN [Concomitant]
     Active Substance: ATORVASTATIN
     Dosage: 80 MG, DAILY
  4. DONEPEZIL [Concomitant]
     Active Substance: DONEPEZIL
  5. FERROUS FUMARATE [Concomitant]
     Active Substance: FERROUS FUMARATE
  6. FUROSEMIDE [Concomitant]
     Active Substance: FUROSEMIDE
  7. GLICLAZIDE [Concomitant]
     Active Substance: GLICLAZIDE
  8. MEMANTINE [Concomitant]
     Active Substance: MEMANTINE
     Dosage: 10 MG, 2X/DAY (BID)
  9. SITAGLIPTIN [Concomitant]
     Active Substance: SITAGLIPTIN
  10. SOLIFENACIN [Concomitant]
     Active Substance: SOLIFENACIN
     Dosage: 10 MG, DAILY
  11. SPIRONOLACTONE [Concomitant]
     Active Substance: SPIRONOLACTONE
     Dosage: 12.5 MG, DAILY
  12. TAMSULOSIN [Concomitant]
     Active Substance: TAMSULOSIN
  13. TELMISARTAN [Concomitant]
     Active Substance: TELMISARTAN

REACTIONS (7)
  - Cardiac failure chronic [Unknown]
  - Aortic stenosis [Unknown]
  - Dyspnoea exertional [Unknown]
  - Presyncope [Unknown]
  - Cough [Unknown]
  - Orthopnoea [Unknown]
  - Palpitations [Unknown]
